FAERS Safety Report 6401122-6 (Version None)
Quarter: 2009Q4

REPORT INFORMATION
  Report Type: 
  Country: None (occurrence: None)
  Receive Date: 20091015
  Receipt Date: 20091005
  Transmission Date: 20100525
  Serious: Yes (Other)
  Sender: FDA-Public Use
  Company Number: JP-JNJFOC-20091003552

PATIENT
  Sex: Female
  Weight: 59 kg

DRUGS (10)
  1. DOXORUBICIN HCL [Suspect]
     Route: 042
  2. DOXORUBICIN HCL [Suspect]
     Indication: OVARIAN CANCER RECURRENT
     Route: 042
  3. NEUPOGEN [Suspect]
     Route: 050
  4. NEUPOGEN [Suspect]
     Indication: NEUTROPHIL COUNT DECREASED
     Route: 050
  5. AZUNOL [Concomitant]
     Indication: PROPHYLAXIS
     Route: 049
  6. DECADRON [Concomitant]
     Indication: PROPHYLAXIS
     Route: 042
  7. PYDOXAL [Concomitant]
     Indication: PROPHYLAXIS
     Route: 048
  8. ZOFRAN ZYDIS [Concomitant]
     Indication: PROPHYLAXIS
     Route: 048
  9. LIPITOR [Concomitant]
     Route: 048
  10. MAGNESIUM OXIDE [Concomitant]
     Route: 048

REACTIONS (1)
  - SUPRAVENTRICULAR TACHYCARDIA [None]
